FAERS Safety Report 18730182 (Version 2)
Quarter: 2021Q2

REPORT INFORMATION
  Report Type: Report from Study
  Country: CA (occurrence: CA)
  Receive Date: 20210112
  Receipt Date: 20210419
  Transmission Date: 20210717
  Serious: Yes (Hospitalization)
  Sender: FDA-Public Use
  Company Number: CA-EMD SERONO-9210988

PATIENT
  Age: 45 Year
  Sex: Female

DRUGS (4)
  1. MAVENCLAD [Suspect]
     Active Substance: CLADRIBINE
     Indication: MULTIPLE SCLEROSIS
     Dosage: YEAR ONE WEEK ONE THERAPY.
     Route: 048
     Dates: start: 20191215
  2. VITAMIN D                          /00107901/ [Concomitant]
     Active Substance: ERGOCALCIFEROL
     Indication: PRODUCT USED FOR UNKNOWN INDICATION
  3. MAVENCLAD [Suspect]
     Active Substance: CLADRIBINE
     Dosage: YEAR ONE WEEK TWO THERAPY
     Route: 048
     Dates: end: 20200112
  4. MAVENCLAD [Suspect]
     Active Substance: CLADRIBINE
     Dosage: YEAR TWO WEEK ONE THERAPY
     Route: 048

REACTIONS (6)
  - Cholecystitis acute [Unknown]
  - Memory impairment [Unknown]
  - Lymphocyte count decreased [Not Recovered/Not Resolved]
  - Balance disorder [Unknown]
  - Cholelithiasis [Unknown]
  - Fatigue [Unknown]

NARRATIVE: CASE EVENT DATE: 2020
